FAERS Safety Report 26108852 (Version 2)
Quarter: 2025Q4

REPORT INFORMATION
  Report Type: Spontaneous
  Country: CN (occurrence: CN)
  Receive Date: 20251201
  Receipt Date: 20251202
  Transmission Date: 20260118
  Serious: Yes (Life-Threatening, Other)
  Sender: BAYER HEALTHCARE PHARMACEUTICALS INC.
  Company Number: CN-BAYER-2025A156757

PATIENT
  Age: 84 Year
  Sex: Female

DRUGS (1)
  1. AVELOX [Suspect]
     Active Substance: MOXIFLOXACIN HYDROCHLORIDE
     Indication: Infection
     Dosage: 1 DF, QD
     Route: 048
     Dates: start: 20251121, end: 20251121

REACTIONS (8)
  - Shock [Recovering/Resolving]
  - Coma [Recovered/Resolved]
  - Respiratory arrest [Recovered/Resolved]
  - Tremor [Recovering/Resolving]
  - Sputum retention [Recovering/Resolving]
  - Ear discomfort [Recovering/Resolving]
  - Erythema [Recovering/Resolving]
  - Vomiting [None]

NARRATIVE: CASE EVENT DATE: 20251121
